FAERS Safety Report 8955604 (Version 1)
Quarter: 2012Q4

REPORT INFORMATION
  Report Type: 
  Country: US (occurrence: US)
  Receive Date: 20121207
  Receipt Date: 20121207
  Transmission Date: 20130627
  Serious: Yes (Other)
  Sender: FDA-Public Use
  Company Number: US-ROCHE-1163630

PATIENT
  Sex: Male
  Weight: 158.9 kg

DRUGS (4)
  1. PEGASYS [Suspect]
     Indication: PRODUCT USED FOR UNKNOWN INDICATION
     Route: 065
  2. INCIVEK [Suspect]
     Indication: PRODUCT USED FOR UNKNOWN INDICATION
     Route: 065
  3. RIBASPHERE [Suspect]
     Indication: PRODUCT USED FOR UNKNOWN INDICATION
     Route: 065
  4. RIBAPAK [Suspect]
     Indication: PRODUCT USED FOR UNKNOWN INDICATION
     Route: 065

REACTIONS (14)
  - Cardiac failure congestive [Unknown]
  - Weight increased [Unknown]
  - Fluid retention [Unknown]
  - Blister [Unknown]
  - Nausea [Unknown]
  - Fatigue [Unknown]
  - Influenza like illness [Unknown]
  - Malaise [Unknown]
  - Pain [Unknown]
  - Anaemia [Unknown]
  - Rash pruritic [Unknown]
  - Dry mouth [Unknown]
  - Dyspnoea [Unknown]
  - Dyspnoea exertional [Unknown]
